FAERS Safety Report 4288981-0 (Version None)
Quarter: 2004Q1

REPORT INFORMATION
  Report Type: 
  Country: None (occurrence: None)
  Receive Date: 20040205
  Receipt Date: 20030805
  Transmission Date: 20041129
  Serious: Yes (Hospitalization)
  Sender: FDA-Public Use
  Company Number: ETHYOL-02529

PATIENT
  Age: 58 Year
  Sex: Female
  Weight: 58.9676 kg

DRUGS (7)
  1. ETHYOL [Suspect]
     Dosage: 500 MG,1 IN 1 D, SUBCUTANEOUS
     Route: 058
     Dates: start: 20030814, end: 20030902
  2. SEREVENT [Concomitant]
  3. ATROVEN (IPRATROPIUM BROMIDE) [Concomitant]
  4. GLUTAMINE [Concomitant]
  5. CIPRO (CIPROFLOXACINE HYDROCHLORIDE) [Concomitant]
  6. KYTRIL [Concomitant]
  7. COMPAZINE [Concomitant]

REACTIONS (4)
  - NAUSEA [None]
  - PYREXIA [None]
  - RASH PRURITIC [None]
  - VOMITING [None]
